FAERS Safety Report 17525921 (Version 1)
Quarter: 2020Q1

REPORT INFORMATION
  Report Type: Other
  Country: DE (occurrence: DE)
  Receive Date: 20200311
  Receipt Date: 20200311
  Transmission Date: 20200409
  Serious: Yes (Hospitalization, Other)
  Sender: FDA-Public Use
  Company Number: DE-CELLTRION INC.-2020DE020111

PATIENT

DRUGS (50)
  1. PREDNISONE. [Suspect]
     Active Substance: PREDNISONE
     Dosage: 100 MG, UNK
     Route: 048
     Dates: start: 20181108, end: 20181112
  2. VINCRISTINE [Suspect]
     Active Substance: VINCRISTINE
     Dosage: 1 MG, INFUSION (START TIME: 12:35-12:50)
     Route: 041
     Dates: start: 20181220, end: 20181220
  3. RITUXIMAB (UNKNOWN) [Suspect]
     Active Substance: RITUXIMAB
     Dosage: 588 MG, INFUSION RATE: 3.3 ML/MIN (START TIME: 09:00-11:00)
     Route: 041
     Dates: start: 20181011, end: 20181011
  4. DOXORUBICIN [Suspect]
     Active Substance: DOXORUBICIN
     Indication: DIFFUSE LARGE B-CELL LYMPHOMA
     Dosage: 39 MG, INFUSION (START TIME: 08:45-09:45)
     Route: 041
     Dates: start: 20180928, end: 20180928
  5. PREDNISONE. [Suspect]
     Active Substance: PREDNISONE
     Dosage: 100 MG, UNK
     Route: 048
     Dates: start: 20181011, end: 20181015
  6. PREDNISONE. [Suspect]
     Active Substance: PREDNISONE
     Dosage: 100 MG, UNK
     Route: 048
     Dates: start: 20181025, end: 20181029
  7. VINCRISTINE [Suspect]
     Active Substance: VINCRISTINE
     Dosage: 1 MG, INFUSION (START TIME: 15:05-15:15)
     Route: 041
     Dates: start: 20181025, end: 20181025
  8. CYCLOPHOSPHAMIDE. [Suspect]
     Active Substance: CYCLOPHOSPHAMIDE
     Dosage: 1100 MG, INFUSION (START TIME: 10:30-11:30)
     Route: 041
     Dates: start: 20181220, end: 20181220
  9. COTRIM FORTE [Concomitant]
     Active Substance: SULFAMETHOXAZOLE\TRIMETHOPRIM
     Indication: PROPHYLAXIS
     Dosage: 500 MG, THREE TIMES IN A WEEK
     Route: 048
     Dates: start: 20180927, end: 20181220
  10. RITUXIMAB (UNKNOWN) [Suspect]
     Active Substance: RITUXIMAB
     Dosage: 588 MG, INFUSION RATE: 1.4 ML/MIN (START TIME: 08:30-14:30)
     Route: 041
     Dates: start: 20180927, end: 20180927
  11. RITUXIMAB (UNKNOWN) [Suspect]
     Active Substance: RITUXIMAB
     Dosage: 588 MG, INFUSION RATE: 3.3 ML/MIN (START TIME: 09:00-11:00)
     Route: 041
     Dates: start: 20181011, end: 20181011
  12. RITUXIMAB (UNKNOWN) [Suspect]
     Active Substance: RITUXIMAB
     Dosage: 553 MG, INFUSION RATE: 3.3 ML/MIN (START TIME: 08:30-10:30)
     Route: 041
     Dates: start: 20181220, end: 20181220
  13. PREDNISONE. [Suspect]
     Active Substance: PREDNISONE
     Indication: DIFFUSE LARGE B-CELL LYMPHOMA
     Dosage: 400 MG, UNK
     Route: 048
     Dates: start: 20180927
  14. VINCRISTINE [Suspect]
     Active Substance: VINCRISTINE
     Indication: DIFFUSE LARGE B-CELL LYMPHOMA
     Dosage: 2 MG, INFUSION (START TIME: 11:30-12:30)
     Route: 041
     Dates: start: 20180928, end: 20180928
  15. CYCLOPHOSPHAMIDE. [Suspect]
     Active Substance: CYCLOPHOSPHAMIDE
     Indication: DIFFUSE LARGE B-CELL LYMPHOMA
     Dosage: 700 MG, INFUSION (START TIME: 09:45-10:45)
     Route: 041
     Dates: start: 20180928, end: 20180928
  16. DECORTIN [Concomitant]
     Active Substance: PREDNISONE
     Indication: PRODUCT USED FOR UNKNOWN INDICATION
     Dosage: 100 MG, AT THE DAY OF THERAPY
     Route: 065
  17. PARACETAMOL [Concomitant]
     Active Substance: ACETAMINOPHEN
     Indication: PRODUCT USED FOR UNKNOWN INDICATION
     Dosage: 1 G, 1 DAY OF THERAPY
     Route: 048
     Dates: start: 20180927, end: 20181220
  18. RITUXIMAB (UNKNOWN) [Suspect]
     Active Substance: RITUXIMAB
     Dosage: 588 MG, INFUSION RATE: 3.3 ML/MIN (START TIME: 10:45-12:45)
     Route: 041
     Dates: start: 20181025, end: 20181025
  19. RITUXIMAB (UNKNOWN) [Suspect]
     Active Substance: RITUXIMAB
     Dosage: 598 MG, INFUSION RATE: 3.3 ML/MIN (START TIME: 09:00-11:00)
     Route: 041
     Dates: start: 20181108, end: 20181108
  20. PREDNISONE. [Suspect]
     Active Substance: PREDNISONE
     Dosage: 400 MG, UNK
     Route: 048
     Dates: start: 20181130, end: 20181203
  21. SOLU DECORTIN [Concomitant]
     Active Substance: PREDNISOLONE SODIUM SUCCINATE
     Indication: PRODUCT USED FOR UNKNOWN INDICATION
     Dosage: UNK
     Route: 042
     Dates: start: 20180927, end: 20181220
  22. DOXORUBICIN [Suspect]
     Active Substance: DOXORUBICIN
     Dosage: 39 MG, INFUSION (START TIME: 11:00-12:00)
     Route: 041
     Dates: start: 20181011, end: 20181011
  23. PREDNISONE. [Suspect]
     Active Substance: PREDNISONE
     Dosage: 500 MG, UNK
     Route: 048
     Dates: start: 20181108, end: 20181112
  24. CYCLOPHOSPHAMIDE. [Suspect]
     Active Substance: CYCLOPHOSPHAMIDE
     Dosage: 880 MG, INFUSION (START TIME: 13:00-14:30)
     Route: 041
     Dates: start: 20181025, end: 20181025
  25. CYCLOPHOSPHAMIDE. [Suspect]
     Active Substance: CYCLOPHOSPHAMIDE
     Dosage: 1190 MG, INFUSION RATE: 3.3 ML/MIN (START TIME: 13:30-14:30)
     Route: 041
     Dates: start: 20181129, end: 20181129
  26. UROMITEXAN [Concomitant]
     Active Substance: MESNA
     Indication: PROPHYLAXIS
     Dosage: 400 MG, UNK
     Route: 042
     Dates: start: 20180928, end: 20181220
  27. PREDNISON [Concomitant]
     Active Substance: PREDNISONE
     Indication: PROPHYLAXIS
     Dosage: UNK
     Route: 048
     Dates: start: 20180929, end: 20181224
  28. RITUXIMAB (UNKNOWN) [Suspect]
     Active Substance: RITUXIMAB
     Dosage: 588 MG, INFUSION RATE: 3.3 ML/MIN (START TIME: 10:45-12:45)
     Route: 041
     Dates: start: 20181025, end: 20181025
  29. RITUXIMAB (UNKNOWN) [Suspect]
     Active Substance: RITUXIMAB
     Dosage: 598 MG, INFUSION RATE: 3.3 ML/MIN (START TIME: 09:00-11:00)
     Route: 041
     Dates: start: 20181108, end: 20181108
  30. PREDNISONE. [Suspect]
     Active Substance: PREDNISONE
     Dosage: 500 MG, UNK
     Route: 048
     Dates: start: 20181025, end: 20181029
  31. CYCLOPHOSPHAMIDE. [Suspect]
     Active Substance: CYCLOPHOSPHAMIDE
     Dosage: 900 MG, INFUSION (START TIME: 12:00-13:30)
     Route: 041
     Dates: start: 20181108, end: 20181108
  32. AMPHOTERICIN [Concomitant]
     Active Substance: AMPHOTERICIN B
     Indication: PROPHYLAXIS
     Dosage: UNK, Q4H
     Route: 003
     Dates: start: 20181002, end: 20181230
  33. ACICLOVIR [Concomitant]
     Active Substance: ACYCLOVIR
     Indication: PROPHYLAXIS
     Dosage: 400 MG, BID
     Route: 048
     Dates: start: 20180927, end: 20190102
  34. DOXORUBICIN [Suspect]
     Active Substance: DOXORUBICIN
     Dosage: 80 MG, INFUSION (START TIME: 11:00-12:00)
     Route: 041
     Dates: start: 20181108, end: 20181108
  35. PREDNISONE. [Suspect]
     Active Substance: PREDNISONE
     Dosage: 300 MG, UNK
     Route: 048
     Dates: start: 20180929, end: 20181001
  36. PREDNISONE. [Suspect]
     Active Substance: PREDNISONE
     Dosage: 500 MG, UNK
     Route: 048
     Dates: start: 20181011, end: 20181015
  37. PREDNISONE. [Suspect]
     Active Substance: PREDNISONE
     Dosage: 100 MG, UNK
     Route: 048
     Dates: start: 20181221, end: 20181224
  38. VINCRISTINE [Suspect]
     Active Substance: VINCRISTINE
     Dosage: 1 MG, INFUSION (START TIME: 13:00-13:05)
     Route: 041
     Dates: start: 20181011, end: 20181011
  39. VINCRISTINE [Suspect]
     Active Substance: VINCRISTINE
     Dosage: 1 MG, INFUSION (START TIME: 14:40-14:45)
     Route: 041
     Dates: start: 20181129, end: 20181129
  40. MESNA. [Concomitant]
     Active Substance: MESNA
     Indication: PROPHYLAXIS
     Dosage: 600 MG, AT THE DAY OF THERAPY
     Route: 048
     Dates: start: 20180927, end: 20181220
  41. RITUXIMAB (UNKNOWN) [Suspect]
     Active Substance: RITUXIMAB
     Indication: DIFFUSE LARGE B-CELL LYMPHOMA
     Dosage: 588 MG, INFUSION RATE: 1.4 ML/MIN (START TIME: 08:30-14:30)
     Route: 041
     Dates: start: 20180927, end: 20180927
  42. RITUXIMAB (UNKNOWN) [Suspect]
     Active Substance: RITUXIMAB
     Dosage: 588 MG, INFUSION RATE: 3.3 ML/MIN (START TIME: 10:30-12:30)
     Route: 041
     Dates: start: 20181129, end: 20181129
  43. DOXORUBICIN [Suspect]
     Active Substance: DOXORUBICIN
     Dosage: 59 MG, INFUSION (START TIME: 13:00-14:00)
     Route: 041
     Dates: start: 20181025, end: 20181025
  44. DOXORUBICIN [Suspect]
     Active Substance: DOXORUBICIN
     Dosage: 80 MG, INFUSION RATE: 3.3 ML/MIN (START TIME: 12:30-13:30)
     Route: 041
     Dates: start: 20181129, end: 20181129
  45. DOXORUBICIN [Suspect]
     Active Substance: DOXORUBICIN
     Dosage: 74 MG, INFUSION (START TIME: 11:30-12:30)
     Route: 041
     Dates: start: 20181220, end: 20181220
  46. VINCRISTINE [Suspect]
     Active Substance: VINCRISTINE
     Dosage: 1 MG, INFUSION (START TIME: 13:00-13:05)
     Route: 041
     Dates: start: 20181108, end: 20181108
  47. CYCLOPHOSPHAMIDE. [Suspect]
     Active Substance: CYCLOPHOSPHAMIDE
     Dosage: 590 MG, UNK
     Route: 041
     Dates: start: 20180928, end: 20180928
  48. CYCLOPHOSPHAMIDE. [Suspect]
     Active Substance: CYCLOPHOSPHAMIDE
     Dosage: 590 MG, INFUSION (START TIME: 12:00-13:00)
     Route: 041
     Dates: start: 20181011, end: 20181011
  49. TAVEGIL [CLEMASTINE] [Concomitant]
     Active Substance: CLEMASTINE
     Indication: PROPHYLAXIS
     Dosage: 1 AMPOLUE
     Route: 042
     Dates: start: 20180927, end: 20181220
  50. VITAMIN D [ERGOCALCIFEROL] [Concomitant]
     Active Substance: ERGOCALCIFEROL
     Indication: PROPHYLAXIS
     Dosage: 1000 IE, QW
     Route: 048

REACTIONS (6)
  - Cachexia [Recovered/Resolved]
  - Thrombocytopenia [Recovered/Resolved]
  - Anaemia [Not Recovered/Not Resolved]
  - Alopecia [Unknown]
  - General physical health deterioration [Recovered/Resolved]
  - Overdose [Unknown]

NARRATIVE: CASE EVENT DATE: 20181005
